FAERS Safety Report 7546336-7 (Version None)
Quarter: 2011Q2

REPORT INFORMATION
  Report Type: 
  Country: None (occurrence: None)
  Receive Date: 20110614
  Receipt Date: 20080320
  Transmission Date: 20111010
  Serious: Yes (Hospitalization)
  Sender: FDA-Public Use
  Company Number: PHHY2008AT03529

PATIENT
  Sex: Female
  Weight: 75 kg

DRUGS (9)
  1. LERCANIDIPINE [Concomitant]
     Indication: CARDIAC DISORDER
  2. FEMARA [Suspect]
     Indication: BREAST CANCER
     Dosage: UNK
  3. TEBONIN - SLOW RELEASE [Concomitant]
     Indication: BLOOD DISORDER
  4. FOSICOMB [Concomitant]
     Indication: HYPERTENSION
  5. ZOMETA [Suspect]
     Indication: FIBROSIS
  6. REPAGLINIDE [Concomitant]
     Indication: TYPE 2 DIABETES MELLITUS
  7. GLUCOPHAGE [Concomitant]
     Indication: TYPE 2 DIABETES MELLITUS
  8. ASPRO [Concomitant]
     Indication: BLOOD DISORDER
  9. DIGIMERCK [Concomitant]
     Indication: CARDIAC DISORDER

REACTIONS (1)
  - LUMBAR VERTEBRAL FRACTURE [None]
